FAERS Safety Report 6317099-8 (Version None)
Quarter: 2009Q3

REPORT INFORMATION
  Report Type: 
  Country: None (occurrence: None)
  Receive Date: 20090820
  Receipt Date: 20090811
  Transmission Date: 20100115
  Serious: Yes (Other)
  Sender: FDA-Public Use
  Company Number: CA-GENENTECH-285887

PATIENT
  Sex: Female
  Weight: 62.2 kg

DRUGS (2)
  1. OMALIZUMAB [Suspect]
     Indication: ASTHMA
     Dosage: 225 MG, UNK
     Route: 058
     Dates: start: 20081212
  2. PREDNISONE [Concomitant]
     Indication: DRUG USE FOR UNKNOWN INDICATION

REACTIONS (3)
  - ASTHMA [None]
  - DRUG INEFFECTIVE [None]
  - NASOPHARYNGITIS [None]
